FAERS Safety Report 10215997 (Version 1)
Quarter: 2014Q2

REPORT INFORMATION
  Report Type: Spontaneous
  Country: US (occurrence: None)
  Receive Date: 20140602
  Receipt Date: 20140602
  Transmission Date: 20141212
  Serious: Yes (Other)
  Sender: FDA-Public Use
  Company Number: TPU2014-00122

PATIENT
  Age: 69 Year
  Sex: Female

DRUGS (5)
  1. LIDODERM [Suspect]
     Indication: ARTHRALGIA
     Route: 061
     Dates: start: 2008
  2. LIDODERM [Suspect]
     Indication: PAIN IN EXTREMITY
     Route: 061
     Dates: start: 2008
  3. HORMONES [Suspect]
     Dates: start: 1998, end: 1999
  4. MOTRIN (IBUPROFEN) [Concomitant]
  5. LOTREL (COROVAL B) [Concomitant]

REACTIONS (1)
  - Breast cancer [None]
